FAERS Safety Report 6596585-X (Version None)
Quarter: 2010Q1

REPORT INFORMATION
  Report Type: 
  Country: None (occurrence: None)
  Receive Date: 20100212
  Receipt Date: 20100204
  Transmission Date: 20100710
  Serious: Yes (Other)
  Sender: FDA-Public Use
  Company Number: 2010SP007352

PATIENT
  Age: 22 Year
  Sex: Female

DRUGS (1)
  1. NUVARING [Suspect]
     Indication: DRUG USE FOR UNKNOWN INDICATION
     Dates: start: 20091201

REACTIONS (3)
  - ABORTION SPONTANEOUS [None]
  - DRUG EXPOSURE DURING PREGNANCY [None]
  - VAGINAL HAEMORRHAGE [None]
